FAERS Safety Report 6374467-6 (Version None)
Quarter: 2009Q3

REPORT INFORMATION
  Report Type: 
  Country: None (occurrence: None)
  Receive Date: 20090915
  Receipt Date: 20090915
  Transmission Date: 20100115
  Serious: Yes (Death, Hospitalization)
  Sender: FDA-Public Use
  Company Number: None

PATIENT
  Sex: Male

DRUGS (11)
  1. REVLIMID [Suspect]
     Indication: MULTIPLE MYELOMA
     Dosage: REVLIMID 25MG DAILY ORALLY
     Route: 048
     Dates: start: 20090429, end: 20090908
  2. DEXAMETHASONE 0.5MG TAB [Concomitant]
  3. PROCRIT QMONTH [Concomitant]
  4. FLUOXETINE [Concomitant]
  5. NORTRIPTYLINE HCL [Concomitant]
  6. OMEPRAZOLE [Concomitant]
  7. LACTULOSE [Concomitant]
  8. FUROSEMIDE [Concomitant]
  9. GLIPIZIDE [Concomitant]
  10. HYDROMORPHONE [Concomitant]
  11. MORPHINE [Concomitant]

REACTIONS (9)
  - ANAEMIA [None]
  - FLUID OVERLOAD [None]
  - GASTROINTESTINAL HAEMORRHAGE [None]
  - GENERAL PHYSICAL HEALTH DETERIORATION [None]
  - HYPOGLYCAEMIA [None]
  - LEUKAEMIA PLASMACYTIC [None]
  - PLATELET COUNT DECREASED [None]
  - PNEUMONIA [None]
  - RENAL IMPAIRMENT [None]
